FAERS Safety Report 8955649 (Version 1)
Quarter: 2012Q4

REPORT INFORMATION
  Report Type: 
  Country: US (occurrence: US)
  Receive Date: 20121207
  Receipt Date: 20121207
  Transmission Date: 20130627
  Serious: No
  Sender: FDA-Public Use
  Company Number: US-VERTEX PHARMACEUTICALS INC.-2012-025666

PATIENT
  Age: 57 Year
  Sex: Male
  Weight: 68 kg

DRUGS (5)
  1. VX-950 (TELAPREVIR) [Suspect]
     Indication: HEPATITIS C
     Dosage: 750 mg, tid
     Route: 048
  2. PEGINTRON                          /01543001/ [Suspect]
     Indication: HEPATITIS C
     Dosage: 120 ?g, UNK
  3. RIBAPAK [Concomitant]
     Indication: HEPATITIS C
     Dosage: 800 UNK, qd
  4. MAGNESIUM [Concomitant]
     Dosage: 300 mg, UNK
  5. AMLODIPINE [Concomitant]
     Dosage: 5 mg, UNK

REACTIONS (4)
  - Influenza like illness [Unknown]
  - Pyrexia [Unknown]
  - Fatigue [Unknown]
  - Haemorrhoids [Unknown]
